FAERS Safety Report 11038032 (Version 1)
Quarter: 2015Q2

REPORT INFORMATION
  Report Type: Spontaneous
  Country: US (occurrence: US)
  Receive Date: 20150416
  Receipt Date: 20150416
  Transmission Date: 20150821
  Serious: Yes (Other)
  Sender: FDA-Public Use
  Company Number: US-MYLANLABS-2015M1011471

PATIENT

DRUGS (1)
  1. ESTRADIOL TRANSDERMAL SYSTEM [Suspect]
     Active Substance: ESTRADIOL
     Indication: HORMONE REPLACEMENT THERAPY
     Dosage: 0.1 MG, QD, CHANGES TWICE WEEKLY
     Route: 062
     Dates: start: 20150312, end: 20150331

REACTIONS (5)
  - Vaginal haemorrhage [Recovering/Resolving]
  - Hyperhidrosis [None]
  - Metrorrhagia [None]
  - Drug effect increased [None]
  - Product adhesion issue [None]

NARRATIVE: CASE EVENT DATE: 201503
